FAERS Safety Report 10536212 (Version 2)
Quarter: 2014Q4

REPORT INFORMATION
  Report Type: Spontaneous
  Country: US (occurrence: US)
  Receive Date: 20141022
  Receipt Date: 20141022
  Transmission Date: 20150529
  Serious: No
  Sender: FDA-Public Use
  Company Number: US-RECKITT BENCKISER PHARMACEUTICAL, INC-RB-64385-2014

PATIENT

DRUGS (6)
  1. SUBOXONE [Suspect]
     Active Substance: BUPRENORPHINE HYDROCHLORIDE\NALOXONE HYDROCHLORIDE
     Indication: DRUG DEPENDENCE
     Dosage: SUBOXONE FILM; USED 1/2 STRIP IN THE MORNING AND 1/2 IN THE AFTERNOON
     Route: 060
     Dates: start: 20140223, end: 20140223
  2. SUBOXONE [Suspect]
     Active Substance: BUPRENORPHINE HYDROCHLORIDE\NALOXONE HYDROCHLORIDE
     Dosage: SUBOXONE FILM
     Route: 060
     Dates: start: 20140225, end: 201403
  3. CELEXA [Concomitant]
     Active Substance: CITALOPRAM HYDROBROMIDE
     Indication: DEPRESSION
     Route: 048
     Dates: start: 2011
  4. SUBOXONE [Suspect]
     Active Substance: BUPRENORPHINE HYDROCHLORIDE\NALOXONE HYDROCHLORIDE
     Indication: PAIN
     Dosage: SUBOXONE FILM
     Route: 060
     Dates: start: 20140212, end: 20140212
  5. NICOTINE. [Concomitant]
     Active Substance: NICOTINE
     Indication: PRODUCT USED FOR UNKNOWN INDICATION
     Dosage: SMOKES A PACK OF CIGARETTES A DAY
     Route: 055
  6. ESTRADIOL. [Concomitant]
     Active Substance: ESTRADIOL
     Indication: HORMONE REPLACEMENT THERAPY
     Route: 048
     Dates: start: 2011

REACTIONS (15)
  - Feeling of body temperature change [Recovered/Resolved]
  - Hyperhidrosis [Recovered/Resolved]
  - Feeling cold [Recovered/Resolved]
  - Nausea [Recovered/Resolved]
  - Drug withdrawal syndrome [Recovered/Resolved]
  - Wrong technique in drug usage process [Recovered/Resolved]
  - Decreased appetite [Recovered/Resolved]
  - Feeling abnormal [Recovered/Resolved]
  - Tremor [Recovered/Resolved]
  - Somnolence [Recovered/Resolved]
  - Abnormal behaviour [Recovered/Resolved]
  - Anxiety [Recovered/Resolved]
  - Nervousness [Recovered/Resolved]
  - Off label use [Recovered/Resolved]
  - Fear [Recovered/Resolved]

NARRATIVE: CASE EVENT DATE: 20140212
